FAERS Safety Report 8255267-9 (Version None)
Quarter: 2012Q2

REPORT INFORMATION
  Report Type: 
  Country: None (occurrence: None)
  Receive Date: 20120403
  Receipt Date: 20120320
  Transmission Date: 20120825
  Serious: Yes (Other)
  Sender: FDA-Public Use
  Company Number: GB-MYLANLABS-2012S1006351

PATIENT
  Age: 19 Year
  Sex: Male
  Weight: 80.9 kg

DRUGS (1)
  1. ISOTRETINOIN [Suspect]
     Indication: ACNE
     Route: 048
     Dates: start: 20111025, end: 20120220

REACTIONS (6)
  - DEPRESSION [None]
  - ERECTILE DYSFUNCTION [None]
  - EMOTIONAL DISTRESS [None]
  - INSOMNIA [None]
  - SUICIDAL IDEATION [None]
  - TEARFULNESS [None]
